FAERS Safety Report 24385658 (Version 2)
Quarter: 2024Q4

REPORT INFORMATION
  Report Type: Spontaneous
  Country: DE (occurrence: DE)
  Receive Date: 20241001
  Receipt Date: 20241106
  Transmission Date: 20250114
  Serious: No
  Sender: MYLAN
  Company Number: DE-MYLANLABS-2024M1086790

PATIENT

DRUGS (1)
  1. EPINEPHRINE [Suspect]
     Active Substance: EPINEPHRINE
     Indication: Product used for unknown indication
     Dosage: UNK
     Route: 065

REACTIONS (2)
  - Suspected product contamination [None]
  - Product quality issue [None]
